FAERS Safety Report 24014462 (Version 3)
Quarter: 2025Q1

REPORT INFORMATION
  Report Type: Report from Study
  Country: CN (occurrence: CN)
  Receive Date: 20240626
  Receipt Date: 20250131
  Transmission Date: 20250409
  Serious: Yes (Hospitalization)
  Sender: RANBAXY
  Company Number: CN-SUN PHARMACEUTICAL INDUSTRIES LTD-2024R1-449846

PATIENT
  Age: 90 Year
  Sex: Male
  Weight: 60 kg

DRUGS (13)
  1. SONIDEGIB [Suspect]
     Active Substance: SONIDEGIB
     Indication: Basal cell carcinoma
     Dosage: 200 MILLIGRAM, QD
     Route: 048
     Dates: start: 20230630, end: 20240523
  2. ALPRAZOLAM [Concomitant]
     Active Substance: ALPRAZOLAM
     Indication: Insomnia
     Dosage: 0.4 MILLIGRAM, QD
     Route: 048
     Dates: start: 20240530
  3. ALUMINUM [Concomitant]
     Active Substance: ALUMINUM
     Indication: Antiplatelet therapy
     Route: 048
     Dates: start: 20240530
  4. ASPIRIN [Concomitant]
     Active Substance: ASPIRIN
     Indication: Antiplatelet therapy
     Route: 048
     Dates: start: 20240530
  5. ATORVASTATIN CALCIUM [Concomitant]
     Active Substance: ATORVASTATIN CALCIUM
     Indication: Lipids increased
     Dosage: 20 MILLIGRAM, QD
     Route: 048
     Dates: start: 20240530
  6. CARBOCYSTEINE [Concomitant]
     Active Substance: CARBOCYSTEINE
     Indication: Productive cough
     Dosage: 10 MILLILITER, QD
     Route: 048
     Dates: start: 20240530
  7. CEFUROXIME AXETIL [Concomitant]
     Active Substance: CEFUROXIME AXETIL
     Indication: Anti-infective therapy
     Dosage: 0.25 GRAM, BID
     Route: 048
     Dates: start: 20240530
  8. CLOPIDOGREL BISULFATE [Concomitant]
     Active Substance: CLOPIDOGREL BISULFATE
     Indication: Antiplatelet therapy
     Dosage: 75 MILLIGRAM, QD
     Route: 048
     Dates: start: 20240530
  9. LACTULOSE [Concomitant]
     Active Substance: LACTULOSE
     Indication: Faecal disimpaction
     Dosage: 10 MILLILITER, QD
     Route: 048
     Dates: start: 20240530
  10. MAGNESIUM [Concomitant]
     Active Substance: MAGNESIUM
     Indication: Antiplatelet therapy
     Route: 048
     Dates: start: 20240530
  11. METOPROLOL TARTRATE [Concomitant]
     Active Substance: METOPROLOL TARTRATE
     Indication: Heart rate abnormal
     Dosage: 12.5 MILLIGRAM, QD
     Route: 048
     Dates: start: 20240530
  12. PANTOPRAZOLE SODIUM [Concomitant]
     Active Substance: PANTOPRAZOLE SODIUM
     Indication: Gastrointestinal disorder
     Dosage: 40 MILLIGRAM, QD
     Route: 048
     Dates: start: 20240530
  13. TAMSULOSIN HYDROCHLORIDE [Concomitant]
     Active Substance: TAMSULOSIN HYDROCHLORIDE
     Indication: Benign prostatic hyperplasia
     Dosage: 0.2 MILLIGRAM, QD
     Route: 048
     Dates: start: 20240530

REACTIONS (1)
  - Fall [Recovered/Resolved]

NARRATIVE: CASE EVENT DATE: 20240523
